FAERS Safety Report 7758877-8 (Version None)
Quarter: 2011Q3

REPORT INFORMATION
  Report Type: 
  Country: None (occurrence: None)
  Receive Date: 20110915
  Receipt Date: 20110906
  Transmission Date: 20111222
  Serious: Yes (Other)
  Sender: FDA-Public Use
  Company Number: 1000022803

PATIENT
  Age: 29 Year
  Sex: Female
  Weight: 74.84 kg

DRUGS (5)
  1. AMBIEN [Concomitant]
  2. ATIVAN [Concomitant]
  3. VIIBRYD [Suspect]
     Indication: DEPRESSION
     Dosage: 10 MG (10 MG, 1 IN 1 D), ORAL
     Route: 048
     Dates: start: 20110804, end: 20110810
  4. TRAZODONE HCL [Concomitant]
  5. TOPAMAX [Concomitant]

REACTIONS (6)
  - FATIGUE [None]
  - HAEMOGLOBIN DECREASED [None]
  - OCULAR ICTERUS [None]
  - HAEMATOCRIT DECREASED [None]
  - ABDOMINAL PAIN UPPER [None]
  - HEPATITIS [None]
